FAERS Safety Report 13294513 (Version 4)
Quarter: 2020Q2

REPORT INFORMATION
  Report Type: Spontaneous
  Country: US (occurrence: US)
  Receive Date: 20170303
  Receipt Date: 20200630
  Transmission Date: 20200713
  Serious: Yes (Death, Life-Threatening, Hospitalization)
  Sender: FDA-Public Use
  Company Number: US-JNJFOC-20161209473

PATIENT
  Age: 57 Year
  Sex: Male

DRUGS (2)
  1. XARELTO [Suspect]
     Active Substance: RIVAROXABAN
     Indication: DEEP VEIN THROMBOSIS
     Route: 048
     Dates: start: 20141105, end: 20141207
  2. XARELTO [Suspect]
     Active Substance: RIVAROXABAN
     Indication: COLON CANCER

REACTIONS (5)
  - Oesophageal varices haemorrhage [Fatal]
  - Colon cancer metastatic [Fatal]
  - Rectal haemorrhage [Fatal]
  - Epistaxis [Recovering/Resolving]
  - Cerebral haemorrhage [Unknown]

NARRATIVE: CASE EVENT DATE: 201412
